FAERS Safety Report 18392826 (Version 3)
Quarter: 2023Q4

REPORT INFORMATION
  Report Type: Spontaneous
  Country: GB (occurrence: GB)
  Receive Date: 20201016
  Receipt Date: 20231215
  Transmission Date: 20240110
  Serious: Yes (Other)
  Sender: FDA-Public Use
  Company Number: GB-JNJFOC-20201011519

PATIENT
  Age: 48 Year
  Sex: Male

DRUGS (8)
  1. VELCADE [Suspect]
     Active Substance: BORTEZOMIB
     Indication: Cold type haemolytic anaemia
     Dosage: UNK
     Route: 065
  2. CYCLOPHOSPHAMIDE [Suspect]
     Active Substance: CYCLOPHOSPHAMIDE
     Indication: Cold type haemolytic anaemia
     Dosage: UNK
     Route: 065
  3. PREDNISOLONE [Suspect]
     Active Substance: PREDNISOLONE
     Indication: Cold type haemolytic anaemia
     Dosage: UNK
     Route: 065
  4. LENALIDOMIDE [Concomitant]
     Active Substance: LENALIDOMIDE
     Indication: Cold type haemolytic anaemia
     Dosage: UNK
     Route: 065
  5. DEXAMETHASONE [Concomitant]
     Active Substance: DEXAMETHASONE
     Indication: Cold type haemolytic anaemia
     Dosage: UNK
     Route: 065
  6. DARATUMUMAB [Concomitant]
     Active Substance: DARATUMUMAB
     Indication: Cold type haemolytic anaemia
     Dosage: 16 MILLIGRAM/KILOGRAM, 1/WEEK
     Route: 065
  7. DARATUMUMAB [Concomitant]
     Active Substance: DARATUMUMAB
     Dosage: 16 MILLIGRAM/KILOGRAM, 2/WEEK
     Route: 065
  8. DARATUMUMAB [Concomitant]
     Active Substance: DARATUMUMAB
     Dosage: 16 MILLIGRAM/KILOGRAM, 4/WEEK
     Route: 065

REACTIONS (5)
  - Cold type haemolytic anaemia [Recovering/Resolving]
  - Neuropathy peripheral [Unknown]
  - Therapeutic response decreased [Unknown]
  - Product use in unapproved indication [Unknown]
  - Off label use [Unknown]
